FAERS Safety Report 21273978 (Version 4)
Quarter: 2022Q3

REPORT INFORMATION
  Report Type: Spontaneous
  Country: US (occurrence: US)
  Receive Date: 20220831
  Receipt Date: 20220906
  Transmission Date: 20221027
  Serious: Yes (Other)
  Sender: FDA-Public Use
  Company Number: US-PFIZER INC-202201104432

PATIENT
  Age: 80 Year
  Sex: Female
  Weight: 44.45 kg

DRUGS (1)
  1. PAXLOVID [Suspect]
     Active Substance: NIRMATRELVIR\RITONAVIR
     Indication: COVID-19 treatment
     Dosage: [PF-07321332 300 MG]/[RITONAVIR 100 MG]; 2X/DAY
     Route: 048
     Dates: start: 20220804

REACTIONS (10)
  - Monoplegia [Recovering/Resolving]
  - Arthralgia [Recovering/Resolving]
  - Tendonitis [Unknown]
  - Urinary tract infection [Unknown]
  - Muscle spasms [Unknown]
  - Cystitis [Unknown]
  - Gait inability [Unknown]
  - Emotional disorder [Unknown]
  - Illness [Unknown]
  - Hypersensitivity [Unknown]

NARRATIVE: CASE EVENT DATE: 20220801
